FAERS Safety Report 6838738-9 (Version None)
Quarter: 2010Q3

REPORT INFORMATION
  Report Type: 
  Country: None (occurrence: None)
  Receive Date: 20100713
  Receipt Date: 20100708
  Transmission Date: 20110219
  Serious: Yes (Other)
  Sender: FDA-Public Use
  Company Number: US-AMGEN-QUU423136

PATIENT
  Sex: Female

DRUGS (2)
  1. NPLATE [Suspect]
     Indication: IDIOPATHIC THROMBOCYTOPENIC PURPURA
     Dates: start: 20100308
  2. CORTICOSTEROIDS [Concomitant]
     Dates: start: 20091231

REACTIONS (3)
  - EMBOLISM ARTERIAL [None]
  - HAEMATOLOGICAL MALIGNANCY [None]
  - THROMBOSIS [None]
